FAERS Safety Report 25018377 (Version 1)
Quarter: 2025Q1

REPORT INFORMATION
  Report Type: Spontaneous
  Country: US (occurrence: US)
  Receive Date: 20250227
  Receipt Date: 20250227
  Transmission Date: 20250408
  Serious: No
  Sender: AVADEL CNS PHARMACEUTICALS, LLC
  Company Number: US-AVADEL CNS PHARMACEUTICALS, LLC-2024AVA02578

PATIENT
  Age: 19 Year
  Sex: Female
  Weight: 63.492 kg

DRUGS (22)
  1. LUMRYZ [Suspect]
     Active Substance: SODIUM OXYBATE
     Indication: Narcolepsy
     Dosage: 4.5 G, ONCE NIGHTLY
     Route: 048
     Dates: start: 2024
  2. LUMRYZ [Suspect]
     Active Substance: SODIUM OXYBATE
     Indication: Cataplexy
  3. LUMRYZ [Suspect]
     Active Substance: SODIUM OXYBATE
     Indication: Narcolepsy
     Dosage: 7.5 G, ONCE NIGHTLY AT BEDTIME
  4. LUMRYZ [Suspect]
     Active Substance: SODIUM OXYBATE
     Indication: Cataplexy
  5. CELEBREX [Concomitant]
     Active Substance: CELECOXIB
     Dosage: UNK, ONCE DAILY AT NIGHT 2 HOURS BEFORE TAKING LUMRYZ
  6. NP THYROID [Concomitant]
     Active Substance: LEVOTHYROXINE\LIOTHYRONINE
  7. AMITIZA [Concomitant]
     Active Substance: LUBIPROSTONE
  8. ZYRTEC [Concomitant]
     Active Substance: CETIRIZINE HYDROCHLORIDE
  9. MODAFINIL [Concomitant]
     Active Substance: MODAFINIL
     Dosage: UNK, 1X/DAY IN THE MORNING
  10. EPINEPHRINE [Concomitant]
     Active Substance: EPINEPHRINE
  11. ASPIRIN AND EXTENDED RELEASE DIPYRIDAMOLE [Concomitant]
  12. VITAMIN B6 [Concomitant]
     Active Substance: PYRIDOXINE HYDROCHLORIDE
  13. THYROID [Concomitant]
     Active Substance: LEVOTHYROXINE\LIOTHYRONINE
  14. UBRELVY [Concomitant]
     Active Substance: UBROGEPANT
  15. XOLAIR [Concomitant]
     Active Substance: OMALIZUMAB
  16. PROMETHAZINE HYDROCHLORIDE [Concomitant]
     Active Substance: PROMETHAZINE HYDROCHLORIDE
  17. EMGALITY [Concomitant]
     Active Substance: GALCANEZUMAB-GNLM
  18. DEPAKOTE [Concomitant]
     Active Substance: DIVALPROEX SODIUM
  19. LUBIPROSTONE [Concomitant]
     Active Substance: LUBIPROSTONE
  20. NALTREXONE HYDROCHLORIDE [Concomitant]
     Active Substance: NALTREXONE HYDROCHLORIDE
  21. VITAMIN D3 [Concomitant]
     Active Substance: CHOLECALCIFEROL
  22. VITAMIN B2 [Concomitant]
     Active Substance: RIBOFLAVIN

REACTIONS (10)
  - Initial insomnia [Recovered/Resolved]
  - Inappropriate affect [Recovered/Resolved]
  - Illness [Recovered/Resolved]
  - Fatigue [Recovered/Resolved]
  - Heart rate increased [Not Recovered/Not Resolved]
  - Dizziness [Recovered/Resolved]
  - Feeling drunk [Recovered/Resolved]
  - Vomiting [Not Recovered/Not Resolved]
  - Nausea [Not Recovered/Not Resolved]
  - Weight decreased [Not Recovered/Not Resolved]

NARRATIVE: CASE EVENT DATE: 20241227
